FAERS Safety Report 7948345-2 (Version None)
Quarter: 2011Q4

REPORT INFORMATION
  Report Type: 
  Country: None (occurrence: None)
  Receive Date: 20111123
  Receipt Date: 20111111
  Transmission Date: 20120403
  Serious: Yes (Life-Threatening)
  Sender: FDA-Public Use
  Company Number: TCI2011A05793

PATIENT
  Age: 68 Year
  Sex: Male

DRUGS (3)
  1. ACTOS [Suspect]
     Indication: TYPE 2 DIABETES MELLITUS
     Dosage: 15 MG (15 MG, 1-2 IN 1 D),  PER ORAL
     Route: 048
     Dates: start: 20060811, end: 20080225
  2. ACTOS [Suspect]
     Indication: TYPE 2 DIABETES MELLITUS
     Dosage: 15 MG (15 MG, 1-2 IN 1 D),  PER ORAL
     Route: 048
     Dates: start: 20080226, end: 20110730
  3. AMARYL [Suspect]
     Indication: PRODUCT USED FOR UNKNOWN INDICATION
     Dosage: 2 MG (1 MG, 2 IN 1 D), PER ORAL
     Route: 048
     Dates: start: 20060811

REACTIONS (1)
  - BLADDER CANCER [None]
